FAERS Safety Report 8001433-7 (Version None)
Quarter: 2011Q4

REPORT INFORMATION
  Report Type: 
  Country: None (occurrence: None)
  Receive Date: 20111222
  Receipt Date: 20111215
  Transmission Date: 20120403
  Serious: Yes (Hospitalization)
  Sender: FDA-Public Use
  Company Number: US-US-EMD SERONO, INC.-230878J10USA

PATIENT
  Sex: Male
  Weight: 84 kg

DRUGS (10)
  1. REBIF [Suspect]
     Route: 058
     Dates: start: 20100301
  2. ZOCOR [Concomitant]
     Indication: BLOOD CHOLESTEROL INCREASED
     Route: 065
     Dates: start: 20100101
  3. DOXASOZIN [Concomitant]
     Indication: HYPERTENSION
     Route: 065
  4. TRAZODONE HCL [Concomitant]
     Indication: INSOMNIA
     Route: 065
  5. REBIF [Suspect]
     Route: 058
     Dates: start: 20100218, end: 20100301
  6. CARBIDOPA AND LEVODOPA [Concomitant]
     Indication: RESTLESS LEGS SYNDROME
     Route: 065
  7. REBIF [Suspect]
     Indication: MULTIPLE SCLEROSIS
     Route: 058
     Dates: start: 20081212, end: 20100101
  8. CYMBALTA [Concomitant]
     Indication: DEPRESSION
     Route: 065
  9. LOVASTATIN [Concomitant]
     Indication: BLOOD CHOLESTEROL INCREASED
     Route: 065
     Dates: start: 20100101
  10. NASACORT [Concomitant]
     Indication: SINUSITIS
     Route: 065

REACTIONS (11)
  - MONOPLEGIA [None]
  - STAPHYLOCOCCAL INFECTION [None]
  - AORTIC DISSECTION [None]
  - BLISTER [None]
  - PYREXIA [None]
  - AORTIC VALVE INCOMPETENCE [None]
  - PERICARDIAL EFFUSION [None]
  - PAIN IN EXTREMITY [None]
  - INFLUENZA LIKE ILLNESS [None]
  - CYSTITIS [None]
  - PLEURAL EFFUSION [None]
